FAERS Safety Report 16651429 (Version 1)
Quarter: 2019Q3

REPORT INFORMATION
  Report Type: Spontaneous
  Country: US (occurrence: US)
  Receive Date: 20190730
  Receipt Date: 20190730
  Transmission Date: 20191004
  Serious: Yes (Other)
  Sender: FDA-Public Use
  Company Number: None

PATIENT
  Age: 78 Year
  Sex: Female

DRUGS (6)
  1. AMLODIPINE [Concomitant]
     Active Substance: AMLODIPINE BESYLATE
  2. CALCITRIOL 0.25 MCG [Concomitant]
  3. JAKAFI [Suspect]
     Active Substance: RUXOLITINIB
     Indication: MYELOFIBROSIS
     Route: 048
     Dates: start: 20190124
  4. ALLOPURINOL 100 MG [Concomitant]
     Active Substance: ALLOPURINOL
  5. FUROSEMIDE 20 MG [Concomitant]
     Active Substance: FUROSEMIDE
  6. FLUDROCORTISONE 0.1 [Concomitant]

REACTIONS (2)
  - Pain in extremity [None]
  - Skin ulcer [None]

NARRATIVE: CASE EVENT DATE: 20190701
